FAERS Safety Report 8341392-0 (Version None)
Quarter: 2012Q2

REPORT INFORMATION
  Report Type: 
  Country: None (occurrence: None)
  Receive Date: 20120507
  Receipt Date: 20120423
  Transmission Date: 20120825
  Serious: Yes (Hospitalization)
  Sender: FDA-Public Use
  Company Number: JP-PFIZER INC-2012008952

PATIENT
  Age: 71 Year
  Sex: Female
  Weight: 47 kg

DRUGS (3)
  1. SUTENT [Suspect]
     Dosage: 25 MG, 1X/DAY
     Route: 048
     Dates: start: 20111122, end: 20111124
  2. MUCOSTA [Concomitant]
     Dosage: 100 MG, 1X/DAY
     Route: 048
     Dates: start: 20111107, end: 20111124
  3. SUTENT [Suspect]
     Indication: RENAL CELL CARCINOMA
     Dosage: 50 MG, 1X/DAY
     Route: 048
     Dates: start: 20111107, end: 20111121

REACTIONS (3)
  - HEPATIC FUNCTION ABNORMAL [None]
  - PANCREATIC ENZYMES INCREASED [None]
  - MALAISE [None]
